FAERS Safety Report 13097530 (Version 1)
Quarter: 2017Q1

REPORT INFORMATION
  Report Type: Spontaneous
  Country: US (occurrence: US)
  Receive Date: 20170108
  Receipt Date: 20170108
  Transmission Date: 20170428
  Serious: Yes (Life-Threatening, Hospitalization, Disabling)
  Sender: FDA-Public Use
  Company Number: None

PATIENT
  Age: 53 Year
  Sex: Female
  Weight: 78.75 kg

DRUGS (1)
  1. CIPRO [Suspect]
     Active Substance: CIPROFLOXACIN HYDROCHLORIDE
     Indication: URINARY TRACT INFECTION

REACTIONS (7)
  - Anxiety [None]
  - Paranoia [None]
  - Palpitations [None]
  - Panic attack [None]
  - Hypertension [None]
  - Agoraphobia [None]
  - Neuropathy peripheral [None]

NARRATIVE: CASE EVENT DATE: 20160627
